FAERS Safety Report 7290085-X (Version None)
Quarter: 2011Q1

REPORT INFORMATION
  Report Type: 
  Country: None (occurrence: None)
  Receive Date: 20110214
  Receipt Date: 20110131
  Transmission Date: 20110831
  Serious: Yes (Hospitalization)
  Sender: FDA-Public Use
  Company Number: FR-CELGENEUS-056-21880-10102546

PATIENT
  Sex: Male

DRUGS (7)
  1. PERMIXON [Concomitant]
     Indication: BENIGN PROSTATIC HYPERPLASIA
     Route: 065
     Dates: start: 20091103
  2. DAFALGAN [Concomitant]
     Route: 065
     Dates: start: 20100323
  3. CALCIUM CARBONATE [Concomitant]
     Indication: OSTEOPOROSIS
     Route: 065
     Dates: start: 20091103
  4. ASPIRIN [Concomitant]
     Indication: THROMBOSIS PROPHYLAXIS
     Route: 065
     Dates: start: 20091103, end: 20100323
  5. REVLIMID [Suspect]
     Indication: MULTIPLE MYELOMA
     Route: 048
     Dates: start: 20080812, end: 20100310
  6. ALFUZOSIN [Concomitant]
     Route: 065
     Dates: start: 20091103
  7. ZELITREX [Concomitant]
     Indication: ANTIVIRAL PROPHYLAXIS
     Route: 065
     Dates: start: 20091103

REACTIONS (1)
  - B-CELL TYPE ACUTE LEUKAEMIA [None]
